FAERS Safety Report 17996428 (Version 1)
Quarter: 2020Q3

REPORT INFORMATION
  Report Type: Spontaneous
  Country: CA (occurrence: CA)
  Receive Date: 20200708
  Receipt Date: 20200708
  Transmission Date: 20201103
  Serious: Yes (Life-Threatening, Disabling, Other)
  Sender: FDA-Public Use
  Company Number: CA-ASTRAZENECA-2020SE44747

PATIENT
  Sex: Female

DRUGS (1)
  1. SEROQUEL XR [Suspect]
     Active Substance: QUETIAPINE FUMARATE
     Dosage: UNKNOWN
     Route: 048

REACTIONS (11)
  - Hyperthyroidism [Unknown]
  - Head injury [Unknown]
  - Blood pressure decreased [Not Recovered/Not Resolved]
  - Dizziness [Unknown]
  - Blood glucose increased [Not Recovered/Not Resolved]
  - Dysphagia [Not Recovered/Not Resolved]
  - Nausea [Unknown]
  - Confusional state [Unknown]
  - Vomiting [Unknown]
  - Syncope [Unknown]
  - Abdominal pain upper [Unknown]
